FAERS Safety Report 7691959-8 (Version None)
Quarter: 2011Q3

REPORT INFORMATION
  Report Type: 
  Country: None (occurrence: None)
  Receive Date: 20110818
  Receipt Date: 20110812
  Transmission Date: 20111222
  Serious: Yes (Other)
  Sender: FDA-Public Use
  Company Number: CA-BAYER-2011-053941

PATIENT
  Age: 32 Year
  Sex: Female
  Weight: 94 kg

DRUGS (2)
  1. ADVAIR DISKUS 100/50 [Concomitant]
     Dosage: UNK UNK, PRN
     Route: 065
  2. YAZ [Suspect]
     Indication: ORAL CONTRACEPTION
     Dosage: 1 DF, QD
     Route: 048
     Dates: start: 20110222

REACTIONS (1)
  - DYSPNOEA [None]
